FAERS Safety Report 5072305-5 (Version None)
Quarter: 2006Q3

REPORT INFORMATION
  Report Type: 
  Country: None (occurrence: None)
  Receive Date: 20060801
  Receipt Date: 20060719
  Transmission Date: 20061208
  Serious: Yes (Disabling)
  Sender: FDA-Public Use
  Company Number: 2006-01166

PATIENT
  Age: 74 Year
  Sex: Male
  Weight: 64.2 kg

DRUGS (9)
  1. VELCADE [Suspect]
     Indication: NON-SMALL CELL LUNG CANCER
     Dosage: 1.30 MG//M2, UNK
     Dates: start: 20060303, end: 20060331
  2. ALIMTA [Suspect]
     Indication: NON-SMALL CELL LUNG CANCER
     Dosage: 500.00 MG/M2, UNK
     Dates: start: 20060303, end: 20060331
  3. NORVASC [Concomitant]
  4. AVANDIA [Concomitant]
  5. METFORMIN (METFORMIN) [Concomitant]
  6. LIPITOR [Concomitant]
  7. PERCOCET [Concomitant]
  8. MOBIC [Concomitant]
  9. INDERAL [Concomitant]

REACTIONS (6)
  - ASTHENIA [None]
  - DISEASE PROGRESSION [None]
  - MENTAL STATUS CHANGES [None]
  - MOOD ALTERED [None]
  - NUCLEAR MAGNETIC RESONANCE IMAGING BRAIN ABNORMAL [None]
  - PERFORMANCE STATUS DECREASED [None]
